FAERS Safety Report 8878804 (Version 1)
Quarter: 2012Q4

REPORT INFORMATION
  Report Type: Report from Study
  Country: CN (occurrence: CN)
  Receive Date: 20121026
  Receipt Date: 20121026
  Transmission Date: 20130627
  Serious: Yes (Other)
  Sender: FDA-Public Use
  Company Number: CN-ROCHE-1149069

PATIENT
  Age: 66 Year
  Sex: Female

DRUGS (4)
  1. PEG-INTERFERON ALFA 2A [Suspect]
     Indication: HEPATITIS C
     Route: 058
     Dates: start: 20091013, end: 201206
  2. PEG-INTERFERON ALFA 2A [Suspect]
     Route: 058
     Dates: start: 201206
  3. RIBAVIRIN (NON-ROCHE/NON-COMPARATOR) [Concomitant]
     Indication: HEPATITIS C
     Route: 048
     Dates: start: 20091013, end: 201206
  4. RIBAVIRIN (NON-ROCHE/NON-COMPARATOR) [Concomitant]
     Route: 048
     Dates: start: 201206

REACTIONS (2)
  - White blood cell count decreased [Recovering/Resolving]
  - Hypothyroidism [Unknown]
